FAERS Safety Report 5014075-2 (Version None)
Quarter: 2006Q2

REPORT INFORMATION
  Report Type: 
  Country: None (occurrence: None)
  Receive Date: 20060525
  Receipt Date: 20060503
  Transmission Date: 20061013
  Serious: Yes (Hospitalization, Other)
  Sender: FDA-Public Use
  Company Number: ES200605001110

PATIENT
  Age: 85 Year
  Sex: Female

DRUGS (3)
  1. FORTEO [Suspect]
     Indication: OSTEOPOROSIS
     Dosage: 20 UG DAILY (1/D) SUBCUTANEOUS
     Route: 058
     Dates: start: 20050501, end: 20060411
  2. FORTEO [Concomitant]
  3. SINTHROME (ACENOCOUMAROL) [Concomitant]

REACTIONS (8)
  - BLADDER PROLAPSE [None]
  - CARDIAC FAILURE [None]
  - CEREBRAL ARTERY EMBOLISM [None]
  - DEHYDRATION [None]
  - DIARRHOEA [None]
  - GASTROINTESTINAL ISCHAEMIA [None]
  - GASTROINTESTINAL NECROSIS [None]
  - INCONTINENCE [None]
